FAERS Safety Report 8478888-7 (Version None)
Quarter: 2012Q2

REPORT INFORMATION
  Report Type: 
  Country: None (occurrence: None)
  Receive Date: 20120629
  Receipt Date: 20120626
  Transmission Date: 20120825
  Serious: Yes (Other)
  Sender: FDA-Public Use
  Company Number: CA-PFIZER INC-2012110009

PATIENT
  Age: 63 Year
  Sex: Male

DRUGS (4)
  1. PRISTIQ [Suspect]
     Indication: POST-TRAUMATIC STRESS DISORDER
     Dosage: 50 MG, UNK
  2. EFFEXOR [Suspect]
     Indication: POST-TRAUMATIC STRESS DISORDER
     Dosage: 300 MG, UNK
  3. PRISTIQ [Suspect]
     Indication: DEPRESSION
     Dosage: 50MG IN THE MORNING
  4. EFFEXOR [Suspect]
     Indication: DEPRESSION
     Dosage: 150 MG, IN THE MORNING

REACTIONS (6)
  - ANXIETY [None]
  - FATIGUE [None]
  - DRUG INEFFECTIVE [None]
  - MALAISE [None]
  - SOMNOLENCE [None]
  - DEPRESSION [None]
